FAERS Safety Report 9782960 (Version 2)
Quarter: 2014Q1

REPORT INFORMATION
  Report Type: Report from Study
  Country: FI (occurrence: FI)
  Receive Date: 20131226
  Receipt Date: 20140211
  Transmission Date: 20141002
  Serious: Yes (Other)
  Sender: FDA-Public Use
  Company Number: PHHY2013FI149341

PATIENT
  Age: 36 Year
  Sex: Male

DRUGS (5)
  1. LEPONEX [Suspect]
     Indication: SCHIZOPHRENIA
     Dosage: UNK
     Dates: start: 2000
  2. LEPONEX [Suspect]
     Dosage: 500 MG, DAILY
  3. ABILIFY [Concomitant]
     Dosage: 30 MG, UNK
  4. KEMADRIN [Concomitant]
     Dosage: 5 MG, UNK
  5. DIAPAM [Concomitant]
     Dosage: UNK UKN, PRN

REACTIONS (5)
  - Electrocardiogram abnormal [Unknown]
  - QRS axis abnormal [Unknown]
  - Electrocardiogram T wave abnormal [Unknown]
  - Electrocardiogram QT prolonged [Unknown]
  - Sinus tachycardia [Unknown]
